FAERS Safety Report 20290123 (Version 1)
Quarter: 2022Q1

REPORT INFORMATION
  Report Type: Spontaneous
  Country: US (occurrence: None)
  Receive Date: 20220104
  Receipt Date: 20220104
  Transmission Date: 20220424
  Serious: No
  Sender: FDA-Public Use
  Company Number: 2021A907414

PATIENT
  Sex: Female
  Weight: 90.7 kg

DRUGS (2)
  1. PULMICORT FLEXHALER [Suspect]
     Active Substance: BUDESONIDE
     Indication: Asthma
     Dosage: 180MCG 1 PUFF TWICE A DAY
     Route: 055
     Dates: start: 20211214
  2. PULMICORT FLEXHALER [Suspect]
     Active Substance: BUDESONIDE
     Indication: Asthma
     Dosage: 180MCG 2 PUFF TWICE A DAY
     Route: 055

REACTIONS (4)
  - Exposure during pregnancy [Unknown]
  - Asthma [Unknown]
  - Unevaluable event [Unknown]
  - Device malfunction [Unknown]
